FAERS Safety Report 20063738 (Version 1)
Quarter: 2021Q4

REPORT INFORMATION
  Report Type: Spontaneous
  Country: US (occurrence: None)
  Receive Date: 20211112
  Receipt Date: 20211112
  Transmission Date: 20220303
  Serious: Yes (Hospitalization)
  Sender: FDA-Public Use
  Company Number: None

PATIENT
  Age: 74 Year
  Sex: Male
  Weight: 95.9 kg

DRUGS (1)
  1. XELODA [Suspect]
     Active Substance: CAPECITABINE
     Dosage: FREQUENCY : TWICE A DAY;?
     Route: 048
     Dates: start: 20210922

REACTIONS (5)
  - Acute respiratory failure [None]
  - Cardiac failure [None]
  - Pneumonia bacterial [None]
  - Acute myocardial infarction [None]
  - Acute kidney injury [None]

NARRATIVE: CASE EVENT DATE: 20211020
